FAERS Safety Report 4893990-4 (Version None)
Quarter: 2006Q1

REPORT INFORMATION
  Report Type: 
  Country: None (occurrence: None)
  Receive Date: 20060127
  Receipt Date: 20050412
  Transmission Date: 20060701
  Serious: Yes (Hospitalization)
  Sender: FDA-Public Use
  Company Number: US-GLAXOSMITHKLINE-A0553813A

PATIENT
  Sex: Male

DRUGS (2)
  1. WELLBUTRIN [Suspect]
  2. AMPHETAMINE [Concomitant]

REACTIONS (2)
  - CONVULSION [None]
  - OVERDOSE [None]
